FAERS Safety Report 9916850 (Version 1)
Quarter: 2014Q1

REPORT INFORMATION
  Report Type: Spontaneous
  Country: US (occurrence: US)
  Receive Date: 20140221
  Receipt Date: 20140221
  Transmission Date: 20141002
  Serious: No
  Sender: FDA-Public Use
  Company Number: US-MYLANLABS-2013S1005736

PATIENT
  Sex: Male

DRUGS (1)
  1. HYDROCHLOROTHIAZIDE CAPSULES [Suspect]

REACTIONS (2)
  - Accidental exposure to product [Recovered/Resolved]
  - No adverse event [Recovered/Resolved]
